FAERS Safety Report 7771665-1 (Version None)
Quarter: 2011Q3

REPORT INFORMATION
  Report Type: 
  Country: None (occurrence: None)
  Receive Date: 20110922
  Receipt Date: 20110322
  Transmission Date: 20111222
  Serious: No
  Sender: FDA-Public Use
  Company Number: US-ASTRAZENECA-2011SE16272

PATIENT
  Age: 22 Year
  Sex: Male

DRUGS (1)
  1. SEROQUEL [Suspect]
     Dosage: 200 MG ONE AND A HALF TABLET AT BEDTIME, 25 MG TABLET IN THE MORNING AND AFTERNOON
     Route: 048

REACTIONS (1)
  - ADVERSE EVENT [None]
